FAERS Safety Report 19603860 (Version 3)
Quarter: 2021Q3

REPORT INFORMATION
  Report Type: Report from Study
  Country: DE (occurrence: DE)
  Receive Date: 20210723
  Receipt Date: 20210916
  Transmission Date: 20211014
  Serious: Yes (Hospitalization)
  Sender: FDA-Public Use
  Company Number: DE-ROCHE-2871226

PATIENT
  Age: 61 Year
  Sex: Male
  Weight: 87 kg

DRUGS (11)
  1. SACUBITRIL;VALSARTAN [Concomitant]
     Active Substance: SACUBITRIL\VALSARTAN
     Indication: ATRIAL FIBRILLATION
     Dosage: 1 DOSAGE FORM = 24 MG SACUBITRIL AND 26 MG VALSARTAN (1?0?2)
     Route: 048
     Dates: start: 20210810
  2. ATORVASTATIN [Concomitant]
     Active Substance: ATORVASTATIN
     Indication: HYPERTENSION
     Route: 048
  3. METOPROLOL. [Concomitant]
     Active Substance: METOPROLOL
     Indication: ATRIAL FIBRILLATION
     Route: 048
     Dates: start: 20210810
  4. SACUBITRIL;VALSARTAN [Concomitant]
     Active Substance: SACUBITRIL\VALSARTAN
     Indication: CORONARY ARTERY DISEASE
     Dosage: 1 DOSAGE FORM = 24 MG SACUBITRIL AND 26 MG VALSARTAN (1?0?2)
     Route: 048
     Dates: start: 20210628
  5. CANDESARTAN. [Concomitant]
     Active Substance: CANDESARTAN
     Indication: CORONARY ARTERY DISEASE
     Route: 048
     Dates: start: 20210628, end: 20210810
  6. CANDESARTAN. [Concomitant]
     Active Substance: CANDESARTAN
     Indication: ATRIAL FIBRILLATION
  7. METOPROLOL. [Concomitant]
     Active Substance: METOPROLOL
     Indication: CORONARY ARTERY DISEASE
     Route: 048
     Dates: start: 202106, end: 20210809
  8. APIXABAN [Concomitant]
     Active Substance: APIXABAN
     Indication: ATRIAL FIBRILLATION
     Dosage: 1?0?1
     Route: 048
     Dates: start: 20190504
  9. OBINUTUZUMAB. [Suspect]
     Active Substance: OBINUTUZUMAB
     Indication: MARGINAL ZONE LYMPHOMA
     Dosage: MAINTENANCE PHASE; ?ON 18/MAY/2021, HE RECEIVED THE LAST DOSE PRIOR TO SAE (SERIOUS ADVERSE EVENT).
     Route: 042
     Dates: start: 20201005
  10. ATORVASTATIN [Concomitant]
     Active Substance: ATORVASTATIN
     Indication: HYPERLIPIDAEMIA
     Dosage: 0?0?1
     Route: 048
  11. METOPROLOL. [Concomitant]
     Active Substance: METOPROLOL
     Route: 048
     Dates: start: 20210811

REACTIONS (2)
  - Atrial fibrillation [Recovered/Resolved with Sequelae]
  - Mitral valve disease [Not Recovered/Not Resolved]

NARRATIVE: CASE EVENT DATE: 20210628
